FAERS Safety Report 20664155 (Version 1)
Quarter: 2022Q2

REPORT INFORMATION
  Report Type: Spontaneous
  Country: US (occurrence: None)
  Receive Date: 20220401
  Receipt Date: 20220401
  Transmission Date: 20220721
  Serious: Yes (Other)
  Sender: FDA-Public Use
  Company Number: None

PATIENT
  Sex: Female

DRUGS (8)
  1. STELARA [Suspect]
     Active Substance: USTEKINUMAB
     Indication: Psoriasis
     Route: 058
  2. ALLOPURINOL [Concomitant]
  3. Calcium Citrate + Vitamin D [Concomitant]
  4. LIVALO [Concomitant]
  5. SYNTHROID [Concomitant]
  6. TRIAMCINOLONE [Concomitant]
     Active Substance: TRIAMCINOLONE
  7. CLOBETASOL [Concomitant]
     Active Substance: CLOBETASOL
  8. KETOCONAZOLE [Concomitant]
     Active Substance: KETOCONAZOLE

REACTIONS (4)
  - Loss of therapeutic response [None]
  - Psoriasis [None]
  - Symptom recurrence [None]
  - Psoriasis [None]
